FAERS Safety Report 18535297 (Version 2)
Quarter: 2020Q4

REPORT INFORMATION
  Report Type: Other
  Country: US (occurrence: US)
  Receive Date: 20201123
  Receipt Date: 20201210
  Transmission Date: 20210114
  Serious: Yes (Other)
  Sender: FDA-Public Use
  Company Number: US-ROCHE-2695113

PATIENT
  Sex: Female
  Weight: 70.37 kg

DRUGS (3)
  1. OCREVUS [Suspect]
     Active Substance: OCRELIZUMAB
     Indication: RELAPSING-REMITTING MULTIPLE SCLEROSIS
     Route: 042
  2. OCREVUS [Suspect]
     Active Substance: OCRELIZUMAB
     Route: 042
     Dates: start: 2018
  3. OCREVUS [Suspect]
     Active Substance: OCRELIZUMAB
     Dosage: 24/APR/2019, 08/MAY/2019, 13/NOV/2019, 14/MAY/2020 (END OF THERAPY)
     Route: 065
     Dates: start: 20190422, end: 20200514

REACTIONS (9)
  - Asthenia [Unknown]
  - Drug ineffective [Unknown]
  - Fall [Unknown]
  - Confusional state [Unknown]
  - Balance disorder [Recovering/Resolving]
  - Multiple sclerosis [Not Recovered/Not Resolved]
  - Mood swings [Recovered/Resolved]
  - Gait disturbance [Recovering/Resolving]
  - Fatigue [Unknown]
